FAERS Safety Report 20052241 (Version 2)
Quarter: 2022Q2

REPORT INFORMATION
  Report Type: Spontaneous
  Country: US (occurrence: US)
  Receive Date: 20211110
  Receipt Date: 20220418
  Transmission Date: 20220720
  Serious: Yes (Other)
  Sender: FDA-Public Use
  Company Number: US-GILEAD-2021-0555134

PATIENT
  Age: 35 Year
  Sex: Male
  Weight: 88.45 kg

DRUGS (33)
  1. STRIBILD [Suspect]
     Active Substance: COBICISTAT\ELVITEGRAVIR\EMTRICITABINE\TENOFOVIR DISOPROXIL FUMARATE
     Indication: HIV infection
     Dosage: UNK
     Route: 048
     Dates: start: 2014
  2. STRIBILD [Suspect]
     Active Substance: COBICISTAT\ELVITEGRAVIR\EMTRICITABINE\TENOFOVIR DISOPROXIL FUMARATE
     Dosage: UNK
     Route: 048
     Dates: start: 201312, end: 2021
  3. BIKTARVY [Concomitant]
     Active Substance: BICTEGRAVIR SODIUM\EMTRICITABINE\TENOFOVIR ALAFENAMIDE FUMARATE
  4. AMBIEN [Concomitant]
     Active Substance: ZOLPIDEM TARTRATE
  5. BELSOMRA [Concomitant]
     Active Substance: SUVOREXANT
  6. BREO ELLIPTA [Concomitant]
     Active Substance: FLUTICASONE FUROATE\VILANTEROL TRIFENATATE
  7. CLONIDINE [Concomitant]
     Active Substance: CLONIDINE
  8. ALBUTEROL [Concomitant]
     Active Substance: ALBUTEROL
  9. DOVATO [Concomitant]
     Active Substance: DOLUTEGRAVIR SODIUM\LAMIVUDINE
  10. DYMISTA [Concomitant]
     Active Substance: AZELASTINE HYDROCHLORIDE\FLUTICASONE PROPIONATE
  11. EFFEXOR [Concomitant]
     Active Substance: VENLAFAXINE HYDROCHLORIDE
  12. MORNIFLUMATE [Concomitant]
     Active Substance: MORNIFLUMATE
  13. FLUTICASONE [Concomitant]
     Active Substance: FLUTICASONE
  14. GABAPENTIN [Concomitant]
     Active Substance: GABAPENTIN
  15. LEVAQUIN [Concomitant]
     Active Substance: LEVOFLOXACIN
  16. LEVOCETIRIZINE [Concomitant]
     Active Substance: LEVOCETIRIZINE
  17. LEXAPRO [Concomitant]
     Active Substance: ESCITALOPRAM OXALATE
  18. LORATADINE [Concomitant]
     Active Substance: LORATADINE
  19. LORAZEPAM [Concomitant]
     Active Substance: LORAZEPAM
  20. MONTELUKAST [Concomitant]
     Active Substance: MONTELUKAST SODIUM
  21. LYRICA [Concomitant]
     Active Substance: PREGABALIN
  22. NYSTATIN AND TRIAMCINOLONE [Concomitant]
     Active Substance: NYSTATIN\TRIAMCINOLONE ACETONIDE
  23. PANTOPRAZOLE [Concomitant]
     Active Substance: PANTOPRAZOLE
  24. PREDNISONE [Concomitant]
     Active Substance: PREDNISONE
  25. PROAIR HFA [Concomitant]
     Active Substance: ALBUTEROL SULFATE
  26. RANITIDINE [Concomitant]
     Active Substance: RANITIDINE
  27. REMERON [Concomitant]
     Active Substance: MIRTAZAPINE
  28. SINGULAIR [Concomitant]
     Active Substance: MONTELUKAST SODIUM
  29. TRAMADOL [Concomitant]
     Active Substance: TRAMADOL
  30. TRAZODONE [Concomitant]
     Active Substance: TRAZODONE HYDROCHLORIDE
  31. VALIUM [Concomitant]
     Active Substance: DIAZEPAM
  32. VITAMIN D NOS [Concomitant]
     Active Substance: VITAMIN D NOS
  33. XANAX [Concomitant]
     Active Substance: ALPRAZOLAM

REACTIONS (10)
  - Osteoporosis [Not Recovered/Not Resolved]
  - Ankle fracture [Unknown]
  - Lower limb fracture [Unknown]
  - Emotional distress [Not Recovered/Not Resolved]
  - Anhedonia [Not Recovered/Not Resolved]
  - Bone pain [Unknown]
  - Bone density decreased [Unknown]
  - Anxiety [Not Recovered/Not Resolved]
  - Pain [Not Recovered/Not Resolved]
  - Depression [Unknown]

NARRATIVE: CASE EVENT DATE: 20210301
